FAERS Safety Report 17504465 (Version 1)
Quarter: 2020Q1

REPORT INFORMATION
  Report Type: Spontaneous
  Country: DE (occurrence: DE)
  Receive Date: 20200305
  Receipt Date: 20200305
  Transmission Date: 20200409
  Serious: Yes (Hospitalization)
  Sender: FDA-Public Use
  Company Number: DE-MYLANLABS-2020M1023401

PATIENT
  Sex: Male

DRUGS (7)
  1. JALRA [Suspect]
     Active Substance: VILDAGLIPTIN
     Indication: PRODUCT USED FOR UNKNOWN INDICATION
     Dosage: 50 MG, QD (1 DF QD)
     Route: 065
     Dates: start: 201908
  2. JALRA [Suspect]
     Active Substance: VILDAGLIPTIN
     Dosage: UNK
     Route: 065
     Dates: start: 20191102
  3. SIMVASTATIN. [Suspect]
     Active Substance: SIMVASTATIN
     Indication: PRODUCT USED FOR UNKNOWN INDICATION
     Dosage: 0.5 DF, QD (5 MG HALF TABLET DAILY)
     Route: 065
  4. CANDESARTAN. [Suspect]
     Active Substance: CANDESARTAN
     Indication: PRODUCT USED FOR UNKNOWN INDICATION
     Dosage: 32 MG, QD (1 DF QD)
     Route: 065
  5. ACETYLSALICYLIC ACID [Suspect]
     Active Substance: ASPIRIN
     Indication: PRODUCT USED FOR UNKNOWN INDICATION
     Dosage: 1 DF, QD
     Route: 065
  6. NEBIVOLOL ACTAVIS [Suspect]
     Active Substance: NEBIVOLOL
     Indication: ANTICOAGULANT THERAPY
     Dosage: 0.5 DF, QD(5 MG)
     Route: 065
  7. JALRA [Suspect]
     Active Substance: VILDAGLIPTIN
     Dosage: UNK
     Route: 065
     Dates: start: 20191023, end: 20191102

REACTIONS (2)
  - Pruritus [Not Recovered/Not Resolved]
  - Concomitant disease aggravated [Not Recovered/Not Resolved]

NARRATIVE: CASE EVENT DATE: 2018
